FAERS Safety Report 9152254 (Version 2)
Quarter: 2013Q2

REPORT INFORMATION
  Report Type: Report from Study
  Country: US (occurrence: US)
  Receive Date: 20130308
  Receipt Date: 20130404
  Transmission Date: 20140414
  Serious: Yes (Hospitalization)
  Sender: FDA-Public Use
  Company Number: US-ACTELION-A-US2013-79987

PATIENT
  Age: 70 Year
  Sex: Female

DRUGS (5)
  1. VELETRI [Suspect]
     Indication: PULMONARY ARTERIAL HYPERTENSION
     Dosage: 18 NG/KG, PER MIN
     Route: 042
     Dates: start: 20120619
  2. VELETRI [Suspect]
     Dosage: 14.5 NG/KG, PER MIN
     Route: 042
     Dates: start: 20120619
  3. TRACLEER [Suspect]
     Indication: PULMONARY ARTERIAL HYPERTENSION
     Route: 048
  4. ADCIRCA [Concomitant]
  5. COUMADIN [Concomitant]

REACTIONS (6)
  - Infection [Unknown]
  - Pyrexia [Unknown]
  - White blood cell count increased [Unknown]
  - Pneumonia [Unknown]
  - Dyspnoea [Not Recovered/Not Resolved]
  - Oxygen saturation decreased [Not Recovered/Not Resolved]
